FAERS Safety Report 18769721 (Version 23)
Quarter: 2024Q1

REPORT INFORMATION
  Report Type: Spontaneous
  Country: US (occurrence: US)
  Receive Date: 20210121
  Receipt Date: 20240208
  Transmission Date: 20240409
  Serious: Yes (Hospitalization, Other)
  Sender: FDA-Public Use
  Company Number: US-PFIZER INC-2017512891

PATIENT
  Age: 35 Year
  Sex: Female
  Weight: 74.84 kg

DRUGS (9)
  1. PREMARIN [Suspect]
     Active Substance: ESTROGENS, CONJUGATED
     Indication: Hormone replacement therapy
     Dosage: 0.625 MG, 1X/DAY
     Route: 048
     Dates: start: 199912
  2. PREMARIN [Suspect]
     Active Substance: ESTROGENS, CONJUGATED
     Indication: Menopause
     Dosage: 0.625 MG, DAILY
     Route: 048
  3. PREMARIN [Suspect]
     Active Substance: ESTROGENS, CONJUGATED
     Indication: Artificial menopause
     Dosage: 0.625 MG, ALTERNATE DAY
  4. PREMARIN [Suspect]
     Active Substance: ESTROGENS, CONJUGATED
     Dosage: 0.625 MG, DAILY
     Route: 048
  5. PREMARIN [Suspect]
     Active Substance: ESTROGENS, CONJUGATED
     Dosage: UNK
  6. PREMARIN [Suspect]
     Active Substance: ESTROGENS, CONJUGATED
     Dosage: 0.625 MG, DAILY (1 TABLET BY MOUTH DAILY)
     Route: 048
  7. XOLAIR [Concomitant]
     Active Substance: OMALIZUMAB
     Indication: Hypersensitivity
     Dosage: UNK
  8. HYDROCHLOROTHIAZIDE\LISINOPRIL [Concomitant]
     Active Substance: HYDROCHLOROTHIAZIDE\LISINOPRIL
     Indication: Hypertension
     Dosage: 25 MG, 1X/DAY AT NIGHT
     Route: 048
  9. LYRICA [Concomitant]
     Active Substance: PREGABALIN
     Dosage: 200MG, 5 TIMES A DAY
     Route: 048

REACTIONS (8)
  - Accident at work [Unknown]
  - Product dispensing error [Unknown]
  - Off label use [Unknown]
  - Intentional product misuse [Unknown]
  - Gait disturbance [Unknown]
  - Weight increased [Unknown]
  - Dyslexia [Unknown]
  - Ear infection [Unknown]

NARRATIVE: CASE EVENT DATE: 20040308
